FAERS Safety Report 10078751 (Version 2)
Quarter: 2014Q2

REPORT INFORMATION
  Report Type: Spontaneous
  Country: JP (occurrence: JP)
  Receive Date: 20140415
  Receipt Date: 20140422
  Transmission Date: 20141212
  Serious: Yes (Other)
  Sender: FDA-Public Use
  Company Number: JP-PFIZER INC-2014101201

PATIENT
  Age: 60 Year
  Sex: Female

DRUGS (3)
  1. NORVASC [Suspect]
     Dosage: 10 MG, DAILY
     Route: 048
     Dates: end: 20140408
  2. VITAMIN D [Concomitant]
  3. CALCIUM CARBONATE [Concomitant]

REACTIONS (2)
  - Ascites [Recovered/Resolved]
  - Peritonitis [Unknown]
